FAERS Safety Report 25329175 (Version 1)
Quarter: 2025Q2

REPORT INFORMATION
  Report Type: Other
  Country: DE (occurrence: DE)
  Receive Date: 20250519
  Receipt Date: 20250519
  Transmission Date: 20250717
  Serious: Yes (Disabling, Congenital Anomaly, Other)
  Sender: LUPIN
  Company Number: DE-EMB-M202012423-1

PATIENT
  Sex: Male
  Weight: 3.7 kg

DRUGS (6)
  1. LEVETIRACETAM [Suspect]
     Active Substance: LEVETIRACETAM
     Indication: Epilepsy
     Dosage: 1500 MG, BID
     Dates: start: 202002, end: 202008
  2. LEVETIRACETAM [Suspect]
     Active Substance: LEVETIRACETAM
  3. LEVETIRACETAM [Suspect]
     Active Substance: LEVETIRACETAM
     Dosage: 2000 MILLIGRAM, BID
     Dates: start: 202008, end: 202011
  4. VIMPAT [Suspect]
     Active Substance: LACOSAMIDE
     Indication: Epilepsy
     Dates: start: 202002, end: 202009
  5. VIMPAT [Suspect]
     Active Substance: LACOSAMIDE
  6. VIMPAT [Suspect]
     Active Substance: LACOSAMIDE
     Dosage: 150 MG, BID
     Dates: start: 202009, end: 202011

REACTIONS (2)
  - Cataract congenital [Recovered/Resolved with Sequelae]
  - Foetal exposure during pregnancy [Unknown]
